FAERS Safety Report 4343203-7 (Version None)
Quarter: 2004Q1

REPORT INFORMATION
  Report Type: 
  Country: None (occurrence: None)
  Receive Date: 20040325
  Receipt Date: 20040116
  Transmission Date: 20041129
  Serious: No
  Sender: FDA-Public Use
  Company Number: USA040156873

PATIENT
  Age: 70 Year
  Sex: Female

DRUGS (1)
  1. FORTEO [Suspect]
     Dates: start: 20030101

REACTIONS (4)
  - BREAST ENGORGEMENT [None]
  - BREAST PAIN [None]
  - BREAST TENDERNESS [None]
  - LOCAL SWELLING [None]
